FAERS Safety Report 7464348-9 (Version None)
Quarter: 2011Q2

REPORT INFORMATION
  Report Type: 
  Country: None (occurrence: None)
  Receive Date: 20110509
  Receipt Date: 20110502
  Transmission Date: 20111010
  Serious: Yes (Death, Other)
  Sender: FDA-Public Use
  Company Number: IT-BAYER-2011-025624

PATIENT
  Age: 34 Year
  Sex: Male

DRUGS (2)
  1. NEXAVAR [Suspect]
     Indication: SALIVARY GLAND CANCER
     Dosage: 400 MG, BID
     Route: 048
     Dates: start: 20101004, end: 20101017
  2. NEXAVAR [Suspect]
     Dosage: 400 MG, QD
     Route: 048
     Dates: start: 20101114, end: 20110124

REACTIONS (3)
  - NEOPLASM MALIGNANT [None]
  - SOFT TISSUE NECROSIS [None]
  - SKIN NECROSIS [None]
